FAERS Safety Report 9674778 (Version 1)
Quarter: 2013Q4

REPORT INFORMATION
  Report Type: Spontaneous
  Country: US (occurrence: US)
  Receive Date: 20131107
  Receipt Date: 20131107
  Transmission Date: 20140711
  Serious: Yes (Other)
  Sender: FDA-Public Use
  Company Number: US-BAYER-2013-135156

PATIENT
  Age: 42 Year
  Sex: Female
  Weight: 70.75 kg

DRUGS (5)
  1. YAZ [Suspect]
  2. GIANVI [Suspect]
  3. MULTIVITAMINS [Concomitant]
     Route: 048
  4. IBUPROFEN [Concomitant]
  5. VITAMIN B COMPLEX [Concomitant]
     Route: 048

REACTIONS (2)
  - Pulmonary embolism [None]
  - Deep vein thrombosis [None]
